FAERS Safety Report 21368478 (Version 1)
Quarter: 2022Q3

REPORT INFORMATION
  Report Type: Report from Study
  Country: US (occurrence: US)
  Receive Date: 20220923
  Receipt Date: 20220923
  Transmission Date: 20221026
  Serious: Yes (Death)
  Sender: FDA-Public Use
  Company Number: US-ABBVIE-4128717

PATIENT
  Weight: 47.627 kg

DRUGS (1)
  1. CREON [Suspect]
     Active Substance: PANCRELIPASE AMYLASE\PANCRELIPASE LIPASE\PANCRELIPASE PROTEASE
     Indication: Product used for unknown indication
     Dosage: DOSAGE: 36000 UNIT
     Route: 048
     Dates: start: 202102

REACTIONS (2)
  - Pancreatic carcinoma [Fatal]
  - Bile duct cancer [Fatal]
